FAERS Safety Report 4856010-3 (Version None)
Quarter: 2005Q4

REPORT INFORMATION
  Report Type: 
  Country: None (occurrence: None)
  Receive Date: 20051216
  Receipt Date: 20051207
  Transmission Date: 20060501
  Serious: Yes (Hospitalization)
  Sender: FDA-Public Use
  Company Number: JP-ABBOTT-05P-087-0319143-00

PATIENT
  Age: 52 Year
  Sex: Male
  Weight: 63 kg

DRUGS (4)
  1. CLARITHROMYCIN [Suspect]
     Indication: UPPER RESPIRATORY TRACT INFLAMMATION
     Route: 048
     Dates: start: 20050916, end: 20050920
  2. LOXOPROFEN SODIUM [Suspect]
     Indication: UPPER RESPIRATORY TRACT INFLAMMATION
     Route: 048
     Dates: start: 20050916, end: 20050920
  3. MITIGLINIDE CALCIUM HYDRATE [Concomitant]
     Indication: DIABETES MELLITUS
     Route: 048
     Dates: start: 20050524, end: 20050920
  4. INSULIN [Concomitant]
     Indication: DIABETES MELLITUS
     Dates: start: 20050922

REACTIONS (6)
  - ANOREXIA [None]
  - BLOOD GLUCOSE INCREASED [None]
  - DECREASED APPETITE [None]
  - JAUNDICE [None]
  - LIVER DISORDER [None]
  - PYREXIA [None]
